FAERS Safety Report 13746085 (Version 4)
Quarter: 2017Q3

REPORT INFORMATION
  Report Type: Spontaneous
  Country: US (occurrence: US)
  Receive Date: 20170712
  Receipt Date: 20170912
  Transmission Date: 20171127
  Serious: Yes (Other)
  Sender: FDA-Public Use
  Company Number: US-AKORN PHARMACEUTICALS-2017AKN00870

PATIENT
  Age: 20 Year
  Sex: Female

DRUGS (4)
  1. MYORISAN [Suspect]
     Active Substance: ISOTRETINOIN
     Dosage: 40 MG, 1X/DAY
     Dates: start: 20170620, end: 20170622
  2. UNSPECIFIED 90-DAY BIRTH CONTROL PILLS [Concomitant]
     Indication: CONTRACEPTION
  3. VYVANSE [Concomitant]
     Active Substance: LISDEXAMFETAMINE DIMESYLATE
     Dosage: UNK
     Dates: start: 20060101
  4. MATRIX 5000 XR [Concomitant]
     Dosage: UNK
     Dates: start: 20170106

REACTIONS (3)
  - Exposure during pregnancy [Recovered/Resolved]
  - Back disorder [Unknown]
  - Abortion induced [Recovered/Resolved]

NARRATIVE: CASE EVENT DATE: 2017
